FAERS Safety Report 10372084 (Version 1)
Quarter: 2014Q3

REPORT INFORMATION
  Report Type: Spontaneous
  Country: US (occurrence: US)
  Receive Date: 20140808
  Receipt Date: 20140808
  Transmission Date: 20150326
  Serious: Yes (Other)
  Sender: FDA-Public Use
  Company Number: US-BAYER-2014-118654

PATIENT
  Sex: Female

DRUGS (1)
  1. MIRENA [Suspect]
     Active Substance: LEVONORGESTREL
     Dosage: 20 MCG/24HR, CONT
     Route: 015
     Dates: start: 20120612, end: 20140426

REACTIONS (12)
  - Back pain [Recovering/Resolving]
  - Discomfort [Recovering/Resolving]
  - Vulvovaginal mycotic infection [Recovering/Resolving]
  - Urinary tract infection [Recovering/Resolving]
  - Loss of libido [Recovering/Resolving]
  - Trichorrhexis [Recovering/Resolving]
  - Arthralgia [Recovering/Resolving]
  - Abdominal pain [Recovering/Resolving]
  - Metrorrhagia [Recovering/Resolving]
  - Acne cystic [Recovering/Resolving]
  - Atrophic vulvovaginitis [Recovering/Resolving]
  - Myalgia [Recovering/Resolving]
